FAERS Safety Report 25120169 (Version 1)
Quarter: 2025Q1

REPORT INFORMATION
  Report Type: Spontaneous
  Country: CA (occurrence: CA)
  Receive Date: 20250325
  Receipt Date: 20250325
  Transmission Date: 20250409
  Serious: Yes (Other)
  Sender: MYLAN
  Company Number: CA-MYLANLABS-2025M1025283

PATIENT
  Age: 41 Year
  Sex: Male
  Weight: 140 kg

DRUGS (88)
  1. AMLODIPINE BESYLATE [Suspect]
     Active Substance: AMLODIPINE BESYLATE
     Indication: Product used for unknown indication
  2. AMLODIPINE BESYLATE [Suspect]
     Active Substance: AMLODIPINE BESYLATE
     Route: 065
  3. AMLODIPINE BESYLATE [Suspect]
     Active Substance: AMLODIPINE BESYLATE
     Route: 065
  4. AMLODIPINE BESYLATE [Suspect]
     Active Substance: AMLODIPINE BESYLATE
  5. GABAPENTIN [Suspect]
     Active Substance: GABAPENTIN
     Indication: Product used for unknown indication
  6. GABAPENTIN [Suspect]
     Active Substance: GABAPENTIN
     Route: 065
  7. GABAPENTIN [Suspect]
     Active Substance: GABAPENTIN
     Route: 065
  8. GABAPENTIN [Suspect]
     Active Substance: GABAPENTIN
  9. BACLOFEN [Suspect]
     Active Substance: BACLOFEN
     Indication: Product used for unknown indication
  10. BACLOFEN [Suspect]
     Active Substance: BACLOFEN
     Route: 048
  11. BACLOFEN [Suspect]
     Active Substance: BACLOFEN
     Route: 048
  12. BACLOFEN [Suspect]
     Active Substance: BACLOFEN
  13. BACLOFEN [Suspect]
     Active Substance: BACLOFEN
     Indication: Product used for unknown indication
     Dosage: 30 MILLIGRAM, TID (3 EVERY 1 DAYS)
  14. BACLOFEN [Suspect]
     Active Substance: BACLOFEN
     Dosage: 30 MILLIGRAM, TID (3 EVERY 1 DAYS)
     Route: 065
  15. BACLOFEN [Suspect]
     Active Substance: BACLOFEN
     Dosage: 30 MILLIGRAM, TID (3 EVERY 1 DAYS)
     Route: 065
  16. BACLOFEN [Suspect]
     Active Substance: BACLOFEN
     Dosage: 30 MILLIGRAM, TID (3 EVERY 1 DAYS)
  17. BISOPROLOL [Suspect]
     Active Substance: BISOPROLOL
     Indication: Product used for unknown indication
  18. BISOPROLOL [Suspect]
     Active Substance: BISOPROLOL
     Route: 065
  19. BISOPROLOL [Suspect]
     Active Substance: BISOPROLOL
     Route: 065
  20. BISOPROLOL [Suspect]
     Active Substance: BISOPROLOL
  21. DOXEPIN HYDROCHLORIDE [Suspect]
     Active Substance: DOXEPIN HYDROCHLORIDE
     Indication: Product used for unknown indication
  22. DOXEPIN HYDROCHLORIDE [Suspect]
     Active Substance: DOXEPIN HYDROCHLORIDE
     Route: 065
  23. DOXEPIN HYDROCHLORIDE [Suspect]
     Active Substance: DOXEPIN HYDROCHLORIDE
     Route: 065
  24. DOXEPIN HYDROCHLORIDE [Suspect]
     Active Substance: DOXEPIN HYDROCHLORIDE
  25. LORAZEPAM [Suspect]
     Active Substance: LORAZEPAM
     Indication: Product used for unknown indication
  26. LORAZEPAM [Suspect]
     Active Substance: LORAZEPAM
     Route: 065
  27. LORAZEPAM [Suspect]
     Active Substance: LORAZEPAM
     Route: 065
  28. LORAZEPAM [Suspect]
     Active Substance: LORAZEPAM
  29. MAYZENT [Suspect]
     Active Substance: SIPONIMOD
     Indication: Secondary progressive multiple sclerosis
  30. MAYZENT [Suspect]
     Active Substance: SIPONIMOD
     Route: 048
  31. MAYZENT [Suspect]
     Active Substance: SIPONIMOD
     Route: 048
  32. MAYZENT [Suspect]
     Active Substance: SIPONIMOD
  33. PRAMIPEXOLE [Suspect]
     Active Substance: PRAMIPEXOLE
     Indication: Product used for unknown indication
  34. PRAMIPEXOLE [Suspect]
     Active Substance: PRAMIPEXOLE
     Route: 048
  35. PRAMIPEXOLE [Suspect]
     Active Substance: PRAMIPEXOLE
     Route: 048
  36. PRAMIPEXOLE [Suspect]
     Active Substance: PRAMIPEXOLE
  37. RABEPRAZOLE [Suspect]
     Active Substance: RABEPRAZOLE
     Indication: Product used for unknown indication
  38. RABEPRAZOLE [Suspect]
     Active Substance: RABEPRAZOLE
     Route: 048
  39. RABEPRAZOLE [Suspect]
     Active Substance: RABEPRAZOLE
     Route: 048
  40. RABEPRAZOLE [Suspect]
     Active Substance: RABEPRAZOLE
  41. REBIF [Suspect]
     Active Substance: INTERFERON BETA-1A
     Indication: Product used for unknown indication
  42. REBIF [Suspect]
     Active Substance: INTERFERON BETA-1A
     Route: 065
  43. REBIF [Suspect]
     Active Substance: INTERFERON BETA-1A
     Route: 065
  44. REBIF [Suspect]
     Active Substance: INTERFERON BETA-1A
  45. ROSUVASTATIN CALCIUM [Suspect]
     Active Substance: ROSUVASTATIN CALCIUM
     Indication: Product used for unknown indication
  46. ROSUVASTATIN CALCIUM [Suspect]
     Active Substance: ROSUVASTATIN CALCIUM
     Route: 048
  47. ROSUVASTATIN CALCIUM [Suspect]
     Active Substance: ROSUVASTATIN CALCIUM
     Route: 048
  48. ROSUVASTATIN CALCIUM [Suspect]
     Active Substance: ROSUVASTATIN CALCIUM
  49. TAMSULOSIN [Suspect]
     Active Substance: TAMSULOSIN
     Indication: Product used for unknown indication
  50. TAMSULOSIN [Suspect]
     Active Substance: TAMSULOSIN
     Route: 048
  51. TAMSULOSIN [Suspect]
     Active Substance: TAMSULOSIN
     Route: 048
  52. TAMSULOSIN [Suspect]
     Active Substance: TAMSULOSIN
  53. TECFIDERA [Suspect]
     Active Substance: DIMETHYL FUMARATE
     Indication: Product used for unknown indication
  54. TECFIDERA [Suspect]
     Active Substance: DIMETHYL FUMARATE
     Route: 065
  55. TECFIDERA [Suspect]
     Active Substance: DIMETHYL FUMARATE
     Route: 065
  56. TECFIDERA [Suspect]
     Active Substance: DIMETHYL FUMARATE
  57. VITAMIN D3 [Concomitant]
     Active Substance: CHOLECALCIFEROL
     Indication: Product used for unknown indication
  58. VITAMIN D3 [Concomitant]
     Active Substance: CHOLECALCIFEROL
     Route: 065
  59. VITAMIN D3 [Concomitant]
     Active Substance: CHOLECALCIFEROL
     Route: 065
  60. VITAMIN D3 [Concomitant]
     Active Substance: CHOLECALCIFEROL
  61. ALLOPURINOL [Concomitant]
     Active Substance: ALLOPURINOL
     Indication: Product used for unknown indication
  62. ALLOPURINOL [Concomitant]
     Active Substance: ALLOPURINOL
     Route: 065
  63. ALLOPURINOL [Concomitant]
     Active Substance: ALLOPURINOL
     Route: 065
  64. ALLOPURINOL [Concomitant]
     Active Substance: ALLOPURINOL
  65. ASPIRIN [Concomitant]
     Active Substance: ASPIRIN
     Indication: Product used for unknown indication
  66. ASPIRIN [Concomitant]
     Active Substance: ASPIRIN
     Route: 065
  67. ASPIRIN [Concomitant]
     Active Substance: ASPIRIN
     Route: 065
  68. ASPIRIN [Concomitant]
     Active Substance: ASPIRIN
  69. ATIVAN [Concomitant]
     Active Substance: LORAZEPAM
     Indication: Product used for unknown indication
  70. ATIVAN [Concomitant]
     Active Substance: LORAZEPAM
     Route: 065
  71. ATIVAN [Concomitant]
     Active Substance: LORAZEPAM
     Route: 065
  72. ATIVAN [Concomitant]
     Active Substance: LORAZEPAM
  73. CALCIUM [Concomitant]
     Active Substance: CALCIUM
     Indication: Product used for unknown indication
  74. CALCIUM [Concomitant]
     Active Substance: CALCIUM
     Route: 065
  75. CALCIUM [Concomitant]
     Active Substance: CALCIUM
     Route: 065
  76. CALCIUM [Concomitant]
     Active Substance: CALCIUM
  77. INDAPAMIDE\PERINDOPRIL [Concomitant]
     Active Substance: INDAPAMIDE\PERINDOPRIL
     Indication: Product used for unknown indication
  78. INDAPAMIDE\PERINDOPRIL [Concomitant]
     Active Substance: INDAPAMIDE\PERINDOPRIL
     Route: 065
  79. INDAPAMIDE\PERINDOPRIL [Concomitant]
     Active Substance: INDAPAMIDE\PERINDOPRIL
     Route: 065
  80. INDAPAMIDE\PERINDOPRIL [Concomitant]
     Active Substance: INDAPAMIDE\PERINDOPRIL
  81. DALFAMPRIDINE [Concomitant]
     Active Substance: DALFAMPRIDINE
     Indication: Product used for unknown indication
  82. DALFAMPRIDINE [Concomitant]
     Active Substance: DALFAMPRIDINE
     Route: 065
  83. DALFAMPRIDINE [Concomitant]
     Active Substance: DALFAMPRIDINE
     Route: 065
  84. DALFAMPRIDINE [Concomitant]
     Active Substance: DALFAMPRIDINE
  85. RABEPRAZOLE SODIUM [Concomitant]
     Active Substance: RABEPRAZOLE SODIUM
     Indication: Product used for unknown indication
  86. RABEPRAZOLE SODIUM [Concomitant]
     Active Substance: RABEPRAZOLE SODIUM
     Route: 065
  87. RABEPRAZOLE SODIUM [Concomitant]
     Active Substance: RABEPRAZOLE SODIUM
     Route: 065
  88. RABEPRAZOLE SODIUM [Concomitant]
     Active Substance: RABEPRAZOLE SODIUM

REACTIONS (24)
  - Anxiety [Unknown]
  - Ataxia [Unknown]
  - Balance disorder [Unknown]
  - Central nervous system lesion [Unknown]
  - Relapsing-remitting multiple sclerosis [Unknown]
  - Dysarthria [Unknown]
  - Fall [Unknown]
  - Gait disturbance [Unknown]
  - Gait spastic [Unknown]
  - Hypertonic bladder [Unknown]
  - Hypoaesthesia [Unknown]
  - Memory impairment [Unknown]
  - Monoparesis [Unknown]
  - Movement disorder [Unknown]
  - Multiple sclerosis relapse [Unknown]
  - Muscle spasticity [Unknown]
  - Needle fatigue [Unknown]
  - Nocturia [Unknown]
  - Pain [Unknown]
  - Pollakiuria [Unknown]
  - Dizziness [Unknown]
  - Insomnia [Unknown]
  - Micturition urgency [Unknown]
  - Erectile dysfunction [Unknown]
